FAERS Safety Report 13572162 (Version 1)
Quarter: 2017Q2

REPORT INFORMATION
  Report Type: Report from Study
  Country: JP (occurrence: JP)
  Receive Date: 20170523
  Receipt Date: 20170523
  Transmission Date: 20170830
  Serious: Yes (Other)
  Sender: FDA-Public Use
  Company Number: JP-MYLANLABS-2017M1030638

PATIENT

DRUGS (3)
  1. BEVACIZUMAB [Suspect]
     Active Substance: BEVACIZUMAB
     Indication: CERVIX CARCINOMA
     Dosage: 15MG/KG ON DAY2, EVERY 3 WEEKS
     Route: 065
  2. PACLITAXEL. [Suspect]
     Active Substance: PACLITAXEL
     Indication: CERVIX CARCINOMA
     Dosage: 175MG/M2 OVER 3 HOURS ON DAY1, EVERY 3 WEEKS
     Route: 050
  3. CISPLATIN. [Suspect]
     Active Substance: CISPLATIN
     Indication: CERVIX CARCINOMA
     Dosage: 50MG/M2 ON DAY2, EVERY 3 WEEKS
     Route: 065

REACTIONS (4)
  - Neutropenia [Recovered/Resolved]
  - Peripheral sensory neuropathy [Unknown]
  - Hypertension [Not Recovered/Not Resolved]
  - Fatigue [Unknown]
